FAERS Safety Report 18400413 (Version 1)
Quarter: 2020Q4

REPORT INFORMATION
  Report Type: Report from Study
  Country: FR (occurrence: FR)
  Receive Date: 20201019
  Receipt Date: 20201019
  Transmission Date: 20210114
  Serious: Yes (Hospitalization)
  Sender: FDA-Public Use
  Company Number: FR-ROCHE-2695847

PATIENT
  Age: 76 Year
  Sex: Male

DRUGS (2)
  1. RUCAPARIB [Suspect]
     Active Substance: RUCAPARIB
     Indication: NEOPLASM
     Dosage: DRUG TEMPORARILY WITHDRAWN
     Route: 048
     Dates: start: 20200506
  2. ATEZOLIZUMAB. [Suspect]
     Active Substance: ATEZOLIZUMAB
     Indication: NEOPLASM
     Route: 042
     Dates: start: 20200507

REACTIONS (1)
  - Anaemia [Recovered/Resolved]

NARRATIVE: CASE EVENT DATE: 20200508
